FAERS Safety Report 6856637-3 (Version None)
Quarter: 2010Q3

REPORT INFORMATION
  Report Type: 
  Country: None (occurrence: None)
  Receive Date: 20100716
  Receipt Date: 20100716
  Transmission Date: 20110219
  Serious: Yes (Other)
  Sender: FDA-Public Use
  Company Number: None

PATIENT
  Age: 64 Year
  Sex: Female
  Weight: 52.6173 kg

DRUGS (3)
  1. TYSABRI [Suspect]
     Indication: MULTIPLE SCLEROSIS
     Dosage: 300 EVERY 6 WEEKS INTRAVENOUS
     Route: 042
     Dates: start: 20080910
  2. PAROXETINE HCL [Concomitant]
  3. BACLOFEN [Concomitant]

REACTIONS (1)
  - CARBOHYDRATE ANTIGEN 27.29 INCREASED [None]
